FAERS Safety Report 20204276 (Version 4)
Quarter: 2022Q3

REPORT INFORMATION
  Report Type: Report from Study
  Country: US (occurrence: US)
  Receive Date: 20211220
  Receipt Date: 20220813
  Transmission Date: 20221026
  Serious: Yes (Death, Hospitalization, Other)
  Sender: FDA-Public Use
  Company Number: US-TAKEDA-2021TUS057976

PATIENT
  Sex: Female

DRUGS (12)
  1. TEDUGLUTIDE [Suspect]
     Active Substance: TEDUGLUTIDE
     Indication: Short-bowel syndrome
     Dosage: 2.75 MILLIGRAM, QD
     Route: 058
     Dates: start: 20210329
  2. TEDUGLUTIDE [Suspect]
     Active Substance: TEDUGLUTIDE
     Indication: Short-bowel syndrome
     Dosage: 2.75 MILLIGRAM, QD
     Route: 058
     Dates: start: 20210329
  3. TEDUGLUTIDE [Suspect]
     Active Substance: TEDUGLUTIDE
     Indication: Short-bowel syndrome
     Dosage: 2.75 MILLIGRAM, QD
     Route: 058
     Dates: start: 20210329
  4. TEDUGLUTIDE [Suspect]
     Active Substance: TEDUGLUTIDE
     Indication: Short-bowel syndrome
     Dosage: 2.75 MILLIGRAM, QD
     Route: 058
     Dates: start: 20210329
  5. TEDUGLUTIDE [Suspect]
     Active Substance: TEDUGLUTIDE
     Dosage: 2.75 MILLIGRAM, QD
     Route: 058
     Dates: start: 20210330
  6. TEDUGLUTIDE [Suspect]
     Active Substance: TEDUGLUTIDE
     Dosage: 2.75 MILLIGRAM, QD
     Route: 058
     Dates: start: 20210330
  7. TEDUGLUTIDE [Suspect]
     Active Substance: TEDUGLUTIDE
     Dosage: 2.75 MILLIGRAM, QD
     Route: 058
     Dates: start: 20210330
  8. TEDUGLUTIDE [Suspect]
     Active Substance: TEDUGLUTIDE
     Dosage: 2.75 MILLIGRAM, QD
     Route: 058
     Dates: start: 20210330
  9. TEDUGLUTIDE [Suspect]
     Active Substance: TEDUGLUTIDE
     Dosage: 2.75 MILLIGRAM, QD
     Route: 058
     Dates: start: 202107
  10. TEDUGLUTIDE [Suspect]
     Active Substance: TEDUGLUTIDE
     Dosage: 2.75 MILLIGRAM, QD
     Route: 058
     Dates: start: 202107
  11. TEDUGLUTIDE [Suspect]
     Active Substance: TEDUGLUTIDE
     Dosage: 2.75 MILLIGRAM, QD
     Route: 058
     Dates: start: 202107
  12. TEDUGLUTIDE [Suspect]
     Active Substance: TEDUGLUTIDE
     Dosage: 2.75 MILLIGRAM, QD
     Route: 058
     Dates: start: 202107

REACTIONS (11)
  - Death [Fatal]
  - Pulmonary thrombosis [Unknown]
  - Urinary tract infection [Unknown]
  - Seizure [Unknown]
  - Cerebrovascular accident [Unknown]
  - Blood iron decreased [Unknown]
  - Bowel movement irregularity [Unknown]
  - Blood magnesium decreased [Unknown]
  - Peripheral swelling [Unknown]
  - Weight decreased [Unknown]
  - Product dose omission issue [Unknown]
